FAERS Safety Report 5371513-3 (Version None)
Quarter: 2007Q2

REPORT INFORMATION
  Report Type: 
  Country: None (occurrence: None)
  Receive Date: 20070615
  Receipt Date: 20061206
  Transmission Date: 20071010
  Serious: Yes (Other)
  Sender: FDA-Public Use
  Company Number: 200617345US

PATIENT
  Sex: Male

DRUGS (3)
  1. LANTUS [Suspect]
     Dosage: 25 U QD; SC
     Route: 058
     Dates: start: 20060101
  2. LANTUS [Suspect]
     Dosage: 27 U QD; SC
     Route: 058
  3. METFORMIN HYDROCHLORIDE [Suspect]

REACTIONS (4)
  - BLOOD GLUCOSE DECREASED [None]
  - BLOOD GLUCOSE FLUCTUATION [None]
  - BLOOD GLUCOSE INCREASED [None]
  - HYPOGLYCAEMIA [None]
